FAERS Safety Report 15196291 (Version 6)
Quarter: 2020Q3

REPORT INFORMATION
  Report Type: Report from Study
  Country: FR (occurrence: FR)
  Receive Date: 20180725
  Receipt Date: 20200728
  Transmission Date: 20201102
  Serious: Yes (Hospitalization)
  Sender: FDA-Public Use
  Company Number: PHHO2018FR008548

PATIENT
  Age: 70 Year
  Sex: Female
  Weight: 49 kg

DRUGS (5)
  1. DABRAFENIB [Suspect]
     Active Substance: DABRAFENIB
     Dosage: 150 MG, BID
     Route: 048
     Dates: start: 20180723
  2. SPARTALIZUMAB [Suspect]
     Active Substance: SPARTALIZUMAB
     Indication: MALIGNANT MELANOMA
     Dosage: UNK
     Route: 042
  3. DABRAFENIB [Suspect]
     Active Substance: DABRAFENIB
     Indication: MALIGNANT MELANOMA
     Dosage: 150 MG, BID
     Route: 048
     Dates: start: 20180704
  4. TRAMETINIB [Suspect]
     Active Substance: TRAMETINIB
     Indication: MALIGNANT MELANOMA
     Dosage: 2 MG, QD
     Route: 048
     Dates: start: 20180704
  5. TRAMETINIB [Suspect]
     Active Substance: TRAMETINIB
     Dosage: 2 MG, QD
     Route: 048
     Dates: start: 20180723

REACTIONS (1)
  - General physical health deterioration [Recovered/Resolved]

NARRATIVE: CASE EVENT DATE: 20180717
